FAERS Safety Report 8407868-2 (Version None)
Quarter: 2012Q2

REPORT INFORMATION
  Report Type: 
  Country: None (occurrence: None)
  Receive Date: 20120604
  Receipt Date: 20120529
  Transmission Date: 20120825
  Serious: Yes (Other)
  Sender: FDA-Public Use
  Company Number: US-ALLERGAN-1207510US

PATIENT
  Age: 82 Year
  Sex: Male

DRUGS (1)
  1. BOTULINUM TOXIN TYPE A [Suspect]
     Indication: HEADACHE
     Dosage: UNK
     Route: 030
     Dates: start: 20120508, end: 20120508

REACTIONS (5)
  - NECK PAIN [None]
  - MUSCULAR WEAKNESS [None]
  - GAIT DISTURBANCE [None]
  - PARALYSIS [None]
  - DYSSTASIA [None]
